FAERS Safety Report 15403559 (Version 3)
Quarter: 2020Q1

REPORT INFORMATION
  Report Type: Report from Study
  Country: JP (occurrence: JP)
  Receive Date: 20180919
  Receipt Date: 20200228
  Transmission Date: 20200409
  Serious: Yes (Other)
  Sender: FDA-Public Use
  Company Number: JP-JNJFOC-20180915445

PATIENT
  Age: 35 Year
  Sex: Female
  Weight: 46 kg

DRUGS (22)
  1. SIMPONI [Suspect]
     Active Substance: GOLIMUMAB
     Route: 058
     Dates: start: 20181014, end: 20181014
  2. AMOXICILLIN/CLAVULANIC ACID [Concomitant]
     Active Substance: AMOXICILLIN\CLAVULANIC ACID
     Indication: PNEUMONIA
     Route: 048
     Dates: start: 20180719, end: 20180725
  3. SIMPONI [Suspect]
     Active Substance: GOLIMUMAB
     Route: 058
     Dates: start: 20180818, end: 20180818
  4. SIMPONI [Suspect]
     Active Substance: GOLIMUMAB
     Route: 058
     Dates: start: 20181201, end: 20181201
  5. SIMPONI [Suspect]
     Active Substance: GOLIMUMAB
     Route: 058
     Dates: start: 20181229, end: 20181229
  6. PREDNISOLONE. [Concomitant]
     Active Substance: PREDNISOLONE
     Route: 048
     Dates: start: 20180429, end: 20180804
  7. SIMPONI [Suspect]
     Active Substance: GOLIMUMAB
     Indication: COLITIS ULCERATIVE
     Route: 058
     Dates: start: 20180706, end: 20180706
  8. SIMPONI [Suspect]
     Active Substance: GOLIMUMAB
     Route: 058
     Dates: start: 20180915, end: 20180915
  9. SIMPONI [Suspect]
     Active Substance: GOLIMUMAB
     Route: 058
     Dates: start: 20181105, end: 20181105
  10. FERRUM                             /00023505/ [Concomitant]
     Indication: ANAEMIA
  11. PREDNISOLONE. [Concomitant]
     Active Substance: PREDNISOLONE
     Route: 048
     Dates: start: 20180416, end: 20180428
  12. PREDNISOLONE. [Concomitant]
     Active Substance: PREDNISOLONE
     Route: 048
     Dates: start: 20180805
  13. GASTER [Concomitant]
     Active Substance: FAMOTIDINE
     Indication: PROPHYLAXIS
     Route: 048
  14. SIMPONI [Suspect]
     Active Substance: GOLIMUMAB
     Route: 058
     Dates: start: 20180805, end: 20180805
  15. CARBOCISTEINE [Concomitant]
     Active Substance: CARBOCYSTEINE
     Indication: PNEUMONIA
     Route: 048
  16. PREDNISOLONE. [Concomitant]
     Active Substance: PREDNISOLONE
     Indication: COLITIS ULCERATIVE
     Route: 048
     Dates: end: 20180415
  17. ASACOL [Concomitant]
     Active Substance: MESALAMINE
     Indication: COLITIS ULCERATIVE
     Route: 048
  18. PREDNISOLONE. [Concomitant]
     Active Substance: PREDNISOLONE
     Route: 048
     Dates: start: 20180818, end: 20180914
  19. BRUFEN [Concomitant]
     Active Substance: IBUPROFEN
     Indication: PNEUMONIA
     Route: 048
  20. PREDNISOLONE. [Concomitant]
     Active Substance: PREDNISOLONE
     Route: 048
     Dates: start: 20180915
  21. AMBROXOL HYDROCHLORIDE [Concomitant]
     Active Substance: AMBROXOL HYDROCHLORIDE
     Indication: PNEUMONIA
     Route: 048
  22. PENTASA [Concomitant]
     Active Substance: MESALAMINE
     Indication: COLITIS ULCERATIVE
     Dates: start: 20180818, end: 20180914

REACTIONS (1)
  - Pneumonia [Recovering/Resolving]

NARRATIVE: CASE EVENT DATE: 20180712
